FAERS Safety Report 22830062 (Version 8)
Quarter: 2025Q1

REPORT INFORMATION
  Report Type: Spontaneous
  Country: US (occurrence: US)
  Receive Date: 20230816
  Receipt Date: 20250121
  Transmission Date: 20250409
  Serious: Yes (Disabling, Other)
  Sender: AMGEN
  Company Number: US-HORIZON THERAPEUTICS-HZN-2023-006116

PATIENT
  Age: 63 Year
  Sex: Female

DRUGS (45)
  1. TEPEZZA [Suspect]
     Active Substance: TEPROTUMUMAB-TRBW
     Indication: Graves^ disease
     Dosage: 600 MILLIGRAM, Q3WK (FIRST INFUSION)
     Route: 042
     Dates: start: 20220627
  2. TEPEZZA [Suspect]
     Active Substance: TEPROTUMUMAB-TRBW
     Indication: Endocrine ophthalmopathy
     Dosage: 1319.046 MILLIGRAM, Q3WK, (SECOND INFUSION)
     Route: 042
     Dates: start: 20220718
  3. TEPEZZA [Suspect]
     Active Substance: TEPROTUMUMAB-TRBW
     Dosage: 1300 MILLIGRAM, Q3WK (THIRD INFUSION)
     Route: 042
     Dates: start: 20220808
  4. TEPEZZA [Suspect]
     Active Substance: TEPROTUMUMAB-TRBW
     Dosage: 1300 MILLIGRAM, Q3WK (FOURTH INFUSION)
     Route: 042
     Dates: start: 20220829
  5. TEPEZZA [Suspect]
     Active Substance: TEPROTUMUMAB-TRBW
     Dosage: 1300 MILLIGRAM, Q3WK (FIFTH INFUSION)
     Route: 042
     Dates: start: 20220919
  6. TEPEZZA [Suspect]
     Active Substance: TEPROTUMUMAB-TRBW
     Dosage: 1300 MILLIGRAM, Q3WK (SIXTH INFUSION)
     Route: 042
     Dates: start: 20221010
  7. TEPEZZA [Suspect]
     Active Substance: TEPROTUMUMAB-TRBW
     Dosage: 1300 MILLIGRAM, Q3WK (SEVENTH INFUSION)
     Route: 042
     Dates: start: 20221031
  8. DIPHENHYDRAMINE [Concomitant]
     Active Substance: DIPHENHYDRAMINE
     Route: 042
     Dates: start: 20220627
  9. FAMOTIDINE [Concomitant]
     Active Substance: FAMOTIDINE
     Route: 042
     Dates: start: 20220627
  10. METHYLPREDNISOLONE SODIUM SUCCINATE [Concomitant]
     Active Substance: METHYLPREDNISOLONE SODIUM SUCCINATE
     Dosage: 500 MILLIGRAM, QWK (FOR 6 WEEKS)
     Route: 040
     Dates: start: 20220216
  11. METHYLPREDNISOLONE SODIUM SUCCINATE [Concomitant]
     Active Substance: METHYLPREDNISOLONE SODIUM SUCCINATE
     Dosage: 500 MILLIGRAM, QWK
     Route: 042
     Dates: start: 20220627
  12. CYCLOBENZAPRINE [Concomitant]
     Active Substance: CYCLOBENZAPRINE
     Route: 048
     Dates: start: 20230206
  13. ROSUVASTATIN [Concomitant]
     Active Substance: ROSUVASTATIN
     Route: 048
     Dates: start: 20220317, end: 20231111
  14. FISH OIL [Concomitant]
     Active Substance: FISH OIL
     Route: 048
  15. FISH OIL [Concomitant]
     Active Substance: FISH OIL
     Dosage: 1000 MILLIGRAM, BID
     Route: 048
  16. REFRESH P.M. [Concomitant]
     Active Substance: MINERAL OIL\PETROLATUM
     Route: 065
  17. XIIDRA [Concomitant]
     Active Substance: LIFITEGRAST
     Dosage: UNK UNK, QD (5 PERCENT DROPPERETTE)
     Route: 047
  18. XIIDRA [Concomitant]
     Active Substance: LIFITEGRAST
     Dosage: UNK, BID (5 PERCENT DROPPERETTE)
     Route: 047
  19. TAPAZOLE [Concomitant]
     Active Substance: METHIMAZOLE
     Dosage: 5 MILLIGRAM, QD
     Route: 048
     Dates: end: 20230310
  20. TAPAZOLE [Concomitant]
     Active Substance: METHIMAZOLE
     Dosage: 2.5 MILLIGRAM, QD
     Route: 048
     Dates: end: 20230310
  21. TENORMIN [Concomitant]
     Active Substance: ATENOLOL
     Dosage: 25 MILLIGRAM, QD (HALF PILL)
     Route: 048
  22. GENTEAL TEARS NOS [Concomitant]
     Active Substance: UNSPECIFIED INGREDIENT
     Route: 065
  23. SYSTANE (HYPROMELLOSE 2910 (4000 MPA.S)) [Concomitant]
     Active Substance: HYPROMELLOSE 2910 (4000 MPA.S)
     Dosage: UNK, QHS
     Route: 047
  24. SYSTANE (HYPROMELLOSE 2910 (4000 MPA.S)) [Concomitant]
     Active Substance: HYPROMELLOSE 2910 (4000 MPA.S)
     Dosage: UNK, BID
     Route: 047
  25. VITAMIN D [Concomitant]
     Active Substance: VITAMIN D NOS
     Dosage: 25 MICROGRAM, QD (4,000 UNITS BY MOUTH DAILY) ((1000 UT)
     Route: 048
  26. CHOLECALCIFEROL [Concomitant]
     Active Substance: CHOLECALCIFEROL
     Dosage: 50 MICROGRAM, QD (2000 UT, TAKE 3 TABLET)
     Route: 048
     Dates: start: 20210101, end: 20230101
  27. GABAPENTIN [Concomitant]
     Active Substance: GABAPENTIN
     Indication: Pain
     Route: 048
  28. TRAZODONE HCL [Concomitant]
     Active Substance: TRAZODONE HYDROCHLORIDE
     Route: 048
  29. HERBALS\TURMERIC [Concomitant]
     Active Substance: HERBALS\TURMERIC
     Dosage: 500 MILLIGRAM, QD
     Route: 048
  30. CRESTOR [Concomitant]
     Active Substance: ROSUVASTATIN CALCIUM
     Dosage: 5 MILLIGRAM, QD (EVERY EVENING)
     Route: 048
     Dates: start: 20220317, end: 20230312
  31. FLEXERIL [Concomitant]
     Active Substance: CYCLOBENZAPRINE HYDROCHLORIDE
     Indication: Muscle spasms
     Route: 048
  32. FLEXERIL [Concomitant]
     Active Substance: CYCLOBENZAPRINE HYDROCHLORIDE
     Indication: Pain
  33. DESYREL [Concomitant]
     Active Substance: TRAZODONE HYDROCHLORIDE
     Route: 048
     Dates: start: 20220317, end: 20230312
  34. ZITHROMAX [Concomitant]
     Active Substance: AZITHROMYCIN DIHYDRATE
     Dosage: 250 MILLIGRAM, QD, TAKE 2 TABLETS (500 MG TOTAL FOR 1 DAY)
     Route: 048
     Dates: start: 20241108, end: 20241113
  35. ZITHROMAX [Concomitant]
     Active Substance: AZITHROMYCIN DIHYDRATE
     Dosage: 250 MILLIGRAM, QD, 1 TABLET (250 MG TOTAL) DAILY FOR 4 DAYS)
     Route: 048
  36. TESSALON [Concomitant]
     Active Substance: BENZONATATE
     Dosage: 100 MILLIGRAM, TID (FOR 5 DAYS, SWALLO WHOLE DO NOT BREAK, CRUSH OR CHEW)
     Route: 048
     Dates: start: 20241108, end: 20241113
  37. BENZONATATE [Concomitant]
     Active Substance: BENZONATATE
     Dosage: 100 MILLIGRAM, TID (FOR 5 DAYS SWALLOW WHOLE DO NOT BREAK, CRUSH OR CHEW)
     Route: 048
  38. SODIUM CHLORIDE [Concomitant]
     Active Substance: SODIUM CHLORIDE
  39. SOLU-MEDROL [Concomitant]
     Active Substance: METHYLPREDNISOLONE SODIUM SUCCINATE
  40. ATENOLOL [Concomitant]
     Active Substance: ATENOLOL
     Route: 048
  41. METHIMAZOLE [Concomitant]
     Active Substance: METHIMAZOLE
     Route: 048
  42. VITAMIN D3 [Concomitant]
     Active Substance: CHOLECALCIFEROL
     Route: 048
  43. NEOMYCIN [Concomitant]
     Active Substance: NEOMYCIN
     Dosage: UNK UNK, QID
     Route: 047
  44. ADVIL [Concomitant]
     Active Substance: IBUPROFEN
     Indication: Arthritis
  45. IBUPROFEN [Concomitant]
     Active Substance: IBUPROFEN
     Route: 065

REACTIONS (36)
  - Deafness neurosensory [Not Recovered/Not Resolved]
  - Deafness permanent [Not Recovered/Not Resolved]
  - Physical disability [Not Recovered/Not Resolved]
  - Disability [Not Recovered/Not Resolved]
  - Rheumatoid arthritis [Unknown]
  - Pain [Not Recovered/Not Resolved]
  - Injury [Not Recovered/Not Resolved]
  - Anxiety [Not Recovered/Not Resolved]
  - Concomitant disease aggravated [Unknown]
  - Discomfort [Unknown]
  - Impaired quality of life [Not Recovered/Not Resolved]
  - Emotional distress [Not Recovered/Not Resolved]
  - Eustachian tube dysfunction [Unknown]
  - Abdominal discomfort [Unknown]
  - Ear discomfort [Recovered/Resolved]
  - Tinnitus [Not Recovered/Not Resolved]
  - Muscle spasms [Unknown]
  - Off label use [Unknown]
  - Economic problem [Not Recovered/Not Resolved]
  - Product quality issue [Unknown]
  - Fatigue [Unknown]
  - Influenza [Unknown]
  - Sinusitis [Unknown]
  - Arthralgia [Unknown]
  - Dysaesthesia [Unknown]
  - Lumbar radiculopathy [Unknown]
  - Sciatica [Unknown]
  - Osteoarthritis [Unknown]
  - Muscular weakness [Unknown]
  - C-reactive protein increased [Unknown]
  - Osteopenia [Unknown]
  - Ligament sprain [Unknown]
  - Myalgia [Unknown]
  - Musculoskeletal stiffness [Unknown]
  - Dry mouth [Unknown]
  - Tenderness [Unknown]

NARRATIVE: CASE EVENT DATE: 20220101
